FAERS Safety Report 4717912-1 (Version None)
Quarter: 2005Q3

REPORT INFORMATION
  Report Type: 
  Country: None (occurrence: None)
  Receive Date: 20050718
  Receipt Date: 20050201
  Transmission Date: 20060218
  Serious: No
  Sender: FDA-Public Use
  Company Number: 2005000238

PATIENT
  Age: 76 Year
  Sex: Male
  Weight: 52.1637 kg

DRUGS (1)
  1. TARCEVA [Suspect]
     Indication: NON-SMALL CELL LUNG CANCER
     Dosage: 150 MG (QD), ORAL
     Route: 048
     Dates: start: 20050104, end: 20050118

REACTIONS (5)
  - ANOREXIA [None]
  - DECREASED APPETITE [None]
  - DEPRESSION [None]
  - ERYTHEMA [None]
  - FATIGUE [None]
